FAERS Safety Report 9819883 (Version 1)
Quarter: 2014Q1

REPORT INFORMATION
  Report Type: Spontaneous
  Country: US (occurrence: None)
  Receive Date: 20140114
  Receipt Date: 20140114
  Transmission Date: 20141002
  Serious: Yes (Hospitalization)
  Sender: FDA-Public Use
  Company Number: None

PATIENT
  Age: 32 Year
  Sex: Male
  Weight: 63.6 kg

DRUGS (2)
  1. OCTREOTIDE [Suspect]
     Indication: CHYLOTHORAX
     Route: 042
     Dates: start: 20140105, end: 20140106
  2. OCTREOTIDE [Suspect]
     Indication: ASCITES
     Route: 042
     Dates: start: 20140105, end: 20140106

REACTIONS (4)
  - Asthenia [None]
  - Vomiting [None]
  - Abdominal pain [None]
  - Lactic acidosis [None]
